FAERS Safety Report 16347275 (Version 3)
Quarter: 2019Q2

REPORT INFORMATION
  Report Type: Spontaneous
  Country: US (occurrence: US)
  Receive Date: 20190523
  Receipt Date: 20190605
  Transmission Date: 20190711
  Serious: Yes (Hospitalization)
  Sender: FDA-Public Use
  Company Number: US-CELGENEUS-USA-20190507130

PATIENT
  Age: 74 Year
  Sex: Female
  Weight: 113.05 kg

DRUGS (1)
  1. POMALYST [Suspect]
     Active Substance: POMALIDOMIDE
     Indication: PLASMA CELL MYELOMA
     Dosage: 3 MILLIGRAM
     Route: 048
     Dates: start: 20190324

REACTIONS (3)
  - Bacterial sepsis [Unknown]
  - Pneumonia bacterial [Unknown]
  - Nausea [Unknown]

NARRATIVE: CASE EVENT DATE: 20190503
